FAERS Safety Report 9611006 (Version 1)
Quarter: 2013Q4

REPORT INFORMATION
  Report Type: Spontaneous
  Country: CL (occurrence: CL)
  Receive Date: 20131009
  Receipt Date: 20131009
  Transmission Date: 20140711
  Serious: Yes (Other)
  Sender: FDA-Public Use
  Company Number: CL-GLAXOSMITHKLINE-A1044748A

PATIENT
  Age: 38 Year
  Sex: Male
  Weight: 85 kg

DRUGS (1)
  1. WELLBUTRIN XL [Suspect]
     Indication: ATTENTION DEFICIT/HYPERACTIVITY DISORDER
     Dosage: 450MG PER DAY
     Route: 065
     Dates: start: 201309, end: 20130930

REACTIONS (5)
  - Convulsion [Recovered/Resolved with Sequelae]
  - Tongue biting [Recovered/Resolved]
  - Postictal state [Recovered/Resolved]
  - Off label use [Unknown]
  - Joint dislocation [Not Recovered/Not Resolved]
